APPROVED DRUG PRODUCT: SIMVASTATIN
Active Ingredient: SIMVASTATIN
Strength: 20MG
Dosage Form/Route: TABLET;ORAL
Application: A078034 | Product #003 | TE Code: AB
Applicant: BIOCON PHARMA LTD
Approved: Dec 20, 2006 | RLD: No | RS: No | Type: RX